FAERS Safety Report 12119982 (Version 1)
Quarter: 2016Q1

REPORT INFORMATION
  Report Type: Spontaneous
  Country: FR (occurrence: FR)
  Receive Date: 20160226
  Receipt Date: 20160226
  Transmission Date: 20160526
  Serious: Yes (Hospitalization)
  Sender: FDA-Public Use
  Company Number: FR-JNJFOC-20160216579

PATIENT
  Age: 28 Year
  Sex: Female

DRUGS (10)
  1. HEXASPRAY [Concomitant]
     Active Substance: BICLOTYMOL
     Route: 065
     Dates: start: 20151228
  2. ORELOX [Concomitant]
     Active Substance: CEFPODOXIME
     Route: 065
     Dates: start: 20151229
  3. VOLTAREN [Concomitant]
     Active Substance: DICLOFENAC SODIUM
     Route: 065
     Dates: start: 20150904
  4. XYZALL [Concomitant]
     Active Substance: LEVOCETIRIZINE DIHYDROCHLORIDE
     Route: 065
  5. MIOREL [Concomitant]
     Active Substance: THIOCOLCHICOSIDE
     Route: 065
     Dates: start: 20150904
  6. MAXILASE [Concomitant]
     Active Substance: PANCRELIPASE
     Route: 065
     Dates: start: 20151228
  7. RHINOTROPHYL [Concomitant]
     Active Substance: FRAMYCETIN\MONOETHANOLAMINE
     Route: 065
     Dates: start: 20160205
  8. NORETHINDRONE AND ETHINYL ESTRADIOL [Suspect]
     Active Substance: ETHINYL ESTRADIOL\NORETHINDRONE
     Indication: CONTRACEPTION
     Route: 065
     Dates: end: 201602
  9. STRESAM [Concomitant]
     Active Substance: ETIFOXINE
     Route: 065
     Dates: start: 20151228
  10. IPECAC [Concomitant]
     Active Substance: IPECAC
     Route: 065
     Dates: start: 20160205

REACTIONS (3)
  - Pulmonary embolism [Recovered/Resolved]
  - Pulmonary infarction [Unknown]
  - Diarrhoea [Unknown]

NARRATIVE: CASE EVENT DATE: 20160205
